FAERS Safety Report 8211213-5 (Version None)
Quarter: 2012Q1

REPORT INFORMATION
  Report Type: 
  Country: None (occurrence: None)
  Receive Date: 20120315
  Receipt Date: 20120307
  Transmission Date: 20120608
  Serious: Yes (Hospitalization, Other)
  Sender: FDA-Public Use
  Company Number: US-US-EMD SERONO, INC.-7013387

PATIENT
  Sex: Female
  Weight: 59 kg

DRUGS (4)
  1. REBIF [Suspect]
     Indication: MULTIPLE SCLEROSIS
     Route: 058
     Dates: start: 20060208
  2. REBIF [Suspect]
     Route: 058
     Dates: start: 20110201
  3. REBIF [Suspect]
  4. ASACOL [Concomitant]
     Indication: CROHN'S DISEASE

REACTIONS (11)
  - COLONIC FISTULA [None]
  - INJECTION SITE PRURITUS [None]
  - BACK PAIN [None]
  - INJECTION SITE ERYTHEMA [None]
  - INJECTION SITE MASS [None]
  - INJECTION SITE SWELLING [None]
  - INTESTINAL STENOSIS [None]
  - POST PROCEDURAL COMPLICATION [None]
  - MUSCULAR WEAKNESS [None]
  - TREMOR [None]
  - INJECTION SITE PAIN [None]
